FAERS Safety Report 9981121 (Version 1)
Quarter: 2014Q1

REPORT INFORMATION
  Report Type: Spontaneous
  Country: DE (occurrence: DE)
  Receive Date: 20140307
  Receipt Date: 20140307
  Transmission Date: 20141002
  Serious: Yes (Life-Threatening, Other)
  Sender: FDA-Public Use
  Company Number: DE-ELI_LILLY_AND_COMPANY-DE201402009162

PATIENT
  Sex: 0

DRUGS (3)
  1. GEMCITABINE HYDROCHLORIDE [Suspect]
     Indication: TRANSITIONAL CELL CARCINOMA
     Dosage: 1250 MG, OTHER
     Route: 065
  2. CISPLATIN [Suspect]
     Indication: TRANSITIONAL CELL CARCINOMA
     Dosage: 70 MG, OTHER
     Route: 065
  3. SORAFENIB [Suspect]
     Indication: TRANSITIONAL CELL CARCINOMA
     Dosage: 400 MG, BID

REACTIONS (1)
  - Hypertensive crisis [Unknown]
